FAERS Safety Report 25792404 (Version 1)
Quarter: 2025Q3

REPORT INFORMATION
  Report Type: Spontaneous
  Country: US (occurrence: US)
  Receive Date: 20250911
  Receipt Date: 20250911
  Transmission Date: 20251021
  Serious: Yes (Life-Threatening, Hospitalization)
  Sender: MYLAN
  Company Number: US-MYLANLABS-2025M1076462

PATIENT
  Age: 69 Year
  Sex: Male

DRUGS (28)
  1. ADENOSINE [Suspect]
     Active Substance: ADENOSINE
     Indication: Supraventricular tachycardia
  2. ADENOSINE [Suspect]
     Active Substance: ADENOSINE
     Route: 065
  3. ADENOSINE [Suspect]
     Active Substance: ADENOSINE
     Route: 065
  4. ADENOSINE [Suspect]
     Active Substance: ADENOSINE
  5. MAGNESIUM [Suspect]
     Active Substance: MAGNESIUM
     Indication: Supraventricular tachycardia
  6. MAGNESIUM [Suspect]
     Active Substance: MAGNESIUM
     Route: 065
  7. MAGNESIUM [Suspect]
     Active Substance: MAGNESIUM
     Route: 065
  8. MAGNESIUM [Suspect]
     Active Substance: MAGNESIUM
  9. AMIODARONE HYDROCHLORIDE [Suspect]
     Active Substance: AMIODARONE HYDROCHLORIDE
     Indication: Supraventricular tachycardia
  10. AMIODARONE HYDROCHLORIDE [Suspect]
     Active Substance: AMIODARONE HYDROCHLORIDE
     Route: 065
  11. AMIODARONE HYDROCHLORIDE [Suspect]
     Active Substance: AMIODARONE HYDROCHLORIDE
     Route: 065
  12. AMIODARONE HYDROCHLORIDE [Suspect]
     Active Substance: AMIODARONE HYDROCHLORIDE
  13. LIDOCAINE [Suspect]
     Active Substance: LIDOCAINE
     Indication: Supraventricular tachycardia
  14. LIDOCAINE [Suspect]
     Active Substance: LIDOCAINE
     Route: 065
  15. LIDOCAINE [Suspect]
     Active Substance: LIDOCAINE
     Route: 065
  16. LIDOCAINE [Suspect]
     Active Substance: LIDOCAINE
  17. VASOPRESSIN [Concomitant]
     Active Substance: VASOPRESSIN
     Indication: Product used for unknown indication
  18. VASOPRESSIN [Concomitant]
     Active Substance: VASOPRESSIN
     Route: 065
  19. VASOPRESSIN [Concomitant]
     Active Substance: VASOPRESSIN
     Route: 065
  20. VASOPRESSIN [Concomitant]
     Active Substance: VASOPRESSIN
  21. NOREPINEPHRINE [Concomitant]
     Active Substance: NOREPINEPHRINE
     Indication: Product used for unknown indication
     Route: 065
  22. NOREPINEPHRINE [Concomitant]
     Active Substance: NOREPINEPHRINE
  23. NOREPINEPHRINE [Concomitant]
     Active Substance: NOREPINEPHRINE
  24. NOREPINEPHRINE [Concomitant]
     Active Substance: NOREPINEPHRINE
     Route: 065
  25. NOREPINEPHRINE [Concomitant]
     Active Substance: NOREPINEPHRINE
     Route: 065
  26. NOREPINEPHRINE [Concomitant]
     Active Substance: NOREPINEPHRINE
  27. NOREPINEPHRINE [Concomitant]
     Active Substance: NOREPINEPHRINE
  28. NOREPINEPHRINE [Concomitant]
     Active Substance: NOREPINEPHRINE
     Route: 065

REACTIONS (2)
  - Drug ineffective [Unknown]
  - Off label use [Unknown]
